FAERS Safety Report 24384016 (Version 4)
Quarter: 2025Q2

REPORT INFORMATION
  Report Type: Report from Study
  Country: US (occurrence: US)
  Receive Date: 20241001
  Receipt Date: 20250423
  Transmission Date: 20250717
  Serious: Yes (Other)
  Sender: ABBVIE
  Company Number: US-ABBVIE-5938938

PATIENT
  Age: 37 Year
  Sex: Female

DRUGS (3)
  1. SKYRIZI [Suspect]
     Active Substance: RISANKIZUMAB-RZAA
     Indication: Psoriatic arthropathy
     Route: 058
     Dates: start: 20231208, end: 20231208
  2. SKYRIZI [Suspect]
     Active Substance: RISANKIZUMAB-RZAA
     Route: 058
     Dates: start: 20240108, end: 20240208
  3. SKYRIZI [Suspect]
     Active Substance: RISANKIZUMAB-RZAA
     Dosage: DOSAGE: 150 MG/ML FORM STRENGTH: 150MG/ML FIRST MAINTENANCE DOSE
     Route: 058
     Dates: start: 20240407

REACTIONS (6)
  - Mammoplasty [Recovering/Resolving]
  - Latent tuberculosis [Recovering/Resolving]
  - Inappropriate schedule of product administration [Unknown]
  - Psoriatic arthropathy [Recovering/Resolving]
  - General physical condition abnormal [Unknown]
  - Mycobacterium tuberculosis complex test positive [Unknown]

NARRATIVE: CASE EVENT DATE: 20240101
